FAERS Safety Report 11314744 (Version 1)
Quarter: 2015Q3

REPORT INFORMATION
  Report Type: Spontaneous
  Country: PT (occurrence: PT)
  Receive Date: 20150727
  Receipt Date: 20150727
  Transmission Date: 20151125
  Serious: Yes (Hospitalization, Other)
  Sender: FDA-Public Use
  Company Number: PT-ABBVIE-15P-130-1434116-00

PATIENT
  Age: 48 Year
  Sex: Female

DRUGS (4)
  1. VENLAFAXINE HYDROCHLORIDE. [Suspect]
     Active Substance: VENLAFAXINE HYDROCHLORIDE
     Indication: DEPRESSION
     Route: 065
  2. VALPROIC ACID. [Suspect]
     Active Substance: VALPROIC ACID
     Indication: DEPRESSION
     Route: 065
  3. CLONAZEPAM. [Suspect]
     Active Substance: CLONAZEPAM
     Indication: DEPRESSION
     Route: 048
  4. PREGABALIN. [Suspect]
     Active Substance: PREGABALIN
     Indication: DEPRESSION
     Route: 048

REACTIONS (8)
  - Depression [Unknown]
  - Abnormal behaviour [Unknown]
  - Elevated mood [Unknown]
  - Hypomania [Unknown]
  - Logorrhoea [Unknown]
  - Affective disorder [Unknown]
  - Drug withdrawal syndrome [Unknown]
  - Drug ineffective [Unknown]
